FAERS Safety Report 6541702-0 (Version None)
Quarter: 2010Q1

REPORT INFORMATION
  Report Type: 
  Country: None (occurrence: None)
  Receive Date: 20100119
  Receipt Date: 20100108
  Transmission Date: 20100710
  Serious: Yes (Hospitalization)
  Sender: FDA-Public Use
  Company Number: NL-AMGEN-US381603

PATIENT
  Age: 61 Year
  Sex: Male
  Weight: 85 kg

DRUGS (5)
  1. ENBREL [Suspect]
     Indication: RHEUMATOID ARTHRITIS
     Route: 058
     Dates: start: 20081101
  2. NAPROXEN [Concomitant]
     Indication: PAIN
     Dosage: AS NEEDED
  3. OMEPRAZOLE [Concomitant]
     Indication: PROPHYLAXIS
  4. PARACETAMOL [Concomitant]
     Indication: PAIN
     Dosage: AS NEEDED
  5. ASCAL [Concomitant]
     Dosage: UNK
     Dates: start: 20080101

REACTIONS (1)
  - CARDIAC MYXOMA [None]
